FAERS Safety Report 23429484 (Version 1)
Quarter: 2024Q1

REPORT INFORMATION
  Report Type: Spontaneous
  Country: DE (occurrence: DE)
  Receive Date: 20240122
  Receipt Date: 20240122
  Transmission Date: 20240410
  Serious: Yes (Death, Hospitalization, Other)
  Sender: FDA-Public Use
  Company Number: None

PATIENT
  Age: 87 Year
  Sex: Female

DRUGS (2)
  1. METHOTREXATE SODIUM [Suspect]
     Active Substance: METHOTREXATE SODIUM
     Indication: Polymyalgia rheumatica
     Dosage: 10MG 1X/WOCHE
     Route: 048
     Dates: end: 20231222
  2. METAMIZOLE [Suspect]
     Active Substance: METAMIZOLE
     Indication: Postoperative analgesia
     Dosage: FREQ:6 H;4X500MG
     Route: 048
     Dates: start: 20231212, end: 20231222

REACTIONS (8)
  - General physical health deterioration [Fatal]
  - Agranulocytosis [Fatal]
  - Stomatitis [Fatal]
  - Pancytopenia [Fatal]
  - Febrile neutropenia [Fatal]
  - Sopor [Fatal]
  - Mouth haemorrhage [Fatal]
  - Infection [Fatal]

NARRATIVE: CASE EVENT DATE: 20231217
